FAERS Safety Report 8876671 (Version 3)
Quarter: 2012Q4

REPORT INFORMATION
  Report Type: 
  Country: US (occurrence: US)
  Receive Date: 20121030
  Receipt Date: 20121214
  Transmission Date: 20130627
  Serious: Yes (Hospitalization, Other)
  Sender: FDA-Public Use
  Company Number: US-JNJFOC-20121013652

PATIENT
  Age: 60 Year
  Sex: Male
  Weight: 95.8 kg

DRUGS (15)
  1. ABIRATERONE ACETATE [Suspect]
     Indication: PROSTATE CANCER METASTATIC
     Dosage: Most recent dose was on 18-AUG-2012
     Route: 048
     Dates: start: 20120731
  2. GDC-0068 [Suspect]
     Indication: PROSTATE CANCER METASTATIC
     Dosage: Most recent dose was on 18-AUG-2012
     Route: 048
     Dates: start: 20120731
  3. PREDNISONE [Suspect]
     Indication: PROSTATE CANCER METASTATIC
     Dosage: Most recent dose was on 18-AUG-2012
     Route: 048
     Dates: start: 20120731
  4. IRON [Concomitant]
     Route: 065
  5. COLACE [Concomitant]
     Indication: CONSTIPATION
     Route: 048
  6. IBUPROFEN [Concomitant]
     Indication: PAIN
     Route: 048
     Dates: start: 2011
  7. MORPHINE SULFATE [Concomitant]
     Indication: FLANK PAIN
     Route: 048
     Dates: start: 20120818
  8. MORPHINE SULFATE [Concomitant]
     Indication: FLANK PAIN
     Route: 048
     Dates: start: 20120820, end: 20120822
  9. MORPHINE [Concomitant]
     Indication: PAIN
     Route: 042
     Dates: start: 20120820, end: 20120820
  10. HEPARIN [Concomitant]
     Indication: FLANK PAIN
     Route: 065
     Dates: start: 20120818, end: 20120818
  11. TRAMADOL [Concomitant]
     Indication: FLANK PAIN
     Route: 065
     Dates: start: 20120818, end: 20120818
  12. CALCIUM W/VITAMIN D [Concomitant]
     Route: 048
     Dates: start: 200806, end: 20120822
  13. LUPRON [Concomitant]
     Indication: PROSTATE CANCER
     Route: 030
     Dates: start: 20100111
  14. K-DUR [Concomitant]
     Indication: PROPHYLAXIS
     Route: 048
     Dates: start: 20120814, end: 20120822
  15. DILAUDID [Concomitant]
     Indication: PAIN
     Route: 048
     Dates: start: 20120822

REACTIONS (1)
  - Pneumonia [Recovered/Resolved]
